FAERS Safety Report 6525520-5 (Version None)
Quarter: 2010Q1

REPORT INFORMATION
  Report Type: 
  Country: None (occurrence: None)
  Receive Date: 20100104
  Receipt Date: 20091224
  Transmission Date: 20100710
  Serious: No
  Sender: FDA-Public Use
  Company Number: JP-ASTRAZENECA-2009SE32847

PATIENT
  Age: 20896 Day
  Sex: Female
  Weight: 60.9 kg

DRUGS (8)
  1. SEROQUEL [Suspect]
     Indication: TENSION
     Route: 048
     Dates: start: 20071115
  2. SEROQUEL [Suspect]
     Route: 048
  3. LIMAS [Concomitant]
     Indication: TENSION
     Route: 048
     Dates: start: 20071115, end: 20081125
  4. LUVOX [Concomitant]
     Indication: TENSION
     Route: 048
     Dates: start: 20071115, end: 20081112
  5. RESLIN [Concomitant]
     Indication: TENSION
     Dates: start: 20071115
  6. MAGLAX [Concomitant]
     Indication: TENSION
     Route: 048
     Dates: start: 20071115
  7. YODEL [Concomitant]
     Indication: TENSION
     Route: 048
     Dates: start: 20071115
  8. LENDORMIN [Concomitant]
     Indication: TENSION
     Route: 048
     Dates: start: 20071115

REACTIONS (3)
  - BLOOD CHOLESTEROL INCREASED [None]
  - BLOOD TRIGLYCERIDES INCREASED [None]
  - HEPATIC STEATOSIS [None]
